FAERS Safety Report 21407007 (Version 1)
Quarter: 2022Q4

REPORT INFORMATION
  Report Type: Spontaneous
  Country: CN (occurrence: CN)
  Receive Date: 20221004
  Receipt Date: 20221004
  Transmission Date: 20230112
  Serious: Yes (Other)
  Sender: FDA-Public Use
  Company Number: CN-GUERBET-CN-20220157

PATIENT
  Age: 38 Year
  Sex: Male
  Weight: 71 kg

DRUGS (1)
  1. OPTIRAY 350 [Suspect]
     Active Substance: IOVERSOL
     Indication: Computerised tomogram abdomen
     Route: 041
     Dates: start: 20220805, end: 20220805

REACTIONS (3)
  - Speech disorder [Recovering/Resolving]
  - Laryngeal oedema [Recovering/Resolving]
  - Erythema [Recovering/Resolving]

NARRATIVE: CASE EVENT DATE: 20220805
